FAERS Safety Report 23845438 (Version 10)
Quarter: 2025Q4

REPORT INFORMATION
  Report Type: Other
  Country: US (occurrence: US)
  Receive Date: 20240511
  Receipt Date: 20251124
  Transmission Date: 20260118
  Serious: No
  Sender: TRAVERE THERAPEUTICS
  Company Number: US-TRAVERE-2024TVT00411

PATIENT
  Age: 57 Year
  Sex: Female

DRUGS (14)
  1. FILSPARI [Suspect]
     Active Substance: SPARSENTAN
     Indication: IgA nephropathy
     Dosage: 1 TABLET ONCE DAILY ON DAYS 1 THROUGH 14
     Route: 048
     Dates: start: 20240402
  2. FILSPARI [Suspect]
     Active Substance: SPARSENTAN
     Indication: Chronic kidney disease
     Dosage: 2 TABLETS ONCE DAILY ON DAYS 15 THROUGH 30
     Route: 048
     Dates: start: 20240416
  3. FILSPARI [Suspect]
     Active Substance: SPARSENTAN
     Indication: Haematuria
     Route: 048
     Dates: end: 2024
  4. FILSPARI [Suspect]
     Active Substance: SPARSENTAN
     Route: 048
     Dates: start: 202408, end: 20250321
  5. FILSPARI [Suspect]
     Active Substance: SPARSENTAN
     Route: 048
     Dates: start: 20250401
  6. TARPEYO [Suspect]
     Active Substance: BUDESONIDE
     Indication: Product used for unknown indication
     Dates: end: 20250321
  7. TARPEYO [Suspect]
     Active Substance: BUDESONIDE
     Dates: start: 20250401
  8. AMLODIPINE BESYLATE [Concomitant]
     Active Substance: AMLODIPINE BESYLATE
  9. ATORVASTATIN CALCIUM [Concomitant]
     Active Substance: ATORVASTATIN CALCIUM
  10. ICOSAPENT ETHYL [Concomitant]
     Active Substance: ICOSAPENT ETHYL
  11. FARXIGA [Concomitant]
     Active Substance: DAPAGLIFLOZIN PROPANEDIOL
  12. VITAMIN D2 [Concomitant]
     Active Substance: ERGOCALCIFEROL
  13. CARVEDILOL [Concomitant]
     Active Substance: CARVEDILOL
  14. ALLOPURINOL [Concomitant]
     Active Substance: ALLOPURINOL

REACTIONS (13)
  - Dizziness [None]
  - Peripheral swelling [Unknown]
  - Swelling face [Unknown]
  - Muscle strength abnormal [Unknown]
  - Fatigue [Unknown]
  - Decreased appetite [None]
  - Pruritus [Unknown]
  - Flank pain [Unknown]
  - Blood pressure increased [Recovered/Resolved]
  - Hypotension [Unknown]
  - Nausea [None]
  - Vomiting [None]
  - Product dose omission issue [Unknown]

NARRATIVE: CASE EVENT DATE: 20250501
